FAERS Safety Report 8699509 (Version 2)
Quarter: 2012Q4

REPORT INFORMATION
  Report Type: Spontaneous
  Country: US (occurrence: None)
  Receive Date: 20120718
  Receipt Date: 20120814
  Transmission Date: 20130627
  Serious: Yes (Hospitalization)
  Sender: FDA-Public Use
  Company Number: 201207021

PATIENT
  Age: 59 Year
  Sex: Male
  Weight: 128.82 kg

DRUGS (9)
  1. TESTIM [Suspect]
     Indication: BLOOD TESTOSTERONE DECREASED
     Dosage: 50 MG, 1 IN 1 D, TRANSDERMAL
     Route: 062
     Dates: start: 201205
  2. INDOMETHACIN [Concomitant]
  3. POTASSIUIM (POTASSIUM) [Concomitant]
  4. FUROSEMIDE [Concomitant]
  5. QUINAPRIL HYDROCHLORIDE [Concomitant]
  6. ASPIRIN [Concomitant]
  7. CARVEDILOL [Concomitant]
  8. LIPITOR [Concomitant]
  9. ANTITHROMBOTIC AGENTS (ANTITHROMBOTIC AGENTS) [Concomitant]

REACTIONS (4)
  - Abscess [None]
  - Abscess limb [None]
  - Subcutaneous abscess [None]
  - Bacterial infection [None]
